FAERS Safety Report 8113147-3 (Version None)
Quarter: 2012Q1

REPORT INFORMATION
  Report Type: 
  Country: None (occurrence: None)
  Receive Date: 20120203
  Receipt Date: 20120127
  Transmission Date: 20120608
  Serious: No
  Sender: FDA-Public Use
  Company Number: US-B.I. PHARMACEUTICALS,INC./RIDGEFIELD-2012-BP-01714BP

PATIENT
  Sex: Female

DRUGS (7)
  1. PRADAXA [Suspect]
     Indication: ATRIAL FIBRILLATION
     Dosage: 300 MG
     Route: 048
     Dates: start: 20110101
  2. MULTAQ [Concomitant]
     Indication: ATRIAL FIBRILLATION
     Route: 048
     Dates: start: 20110101
  3. BENICAR [Concomitant]
     Indication: HYPERTENSION
     Route: 048
  4. MEDICATION NOT FURTHER SPECIFIED [Concomitant]
     Indication: CHRONIC OBSTRUCTIVE PULMONARY DISEASE
     Route: 055
  5. SPIRIVA [Concomitant]
     Indication: CHRONIC OBSTRUCTIVE PULMONARY DISEASE
     Dosage: 18 MCG
     Route: 055
  6. VITAMIN B-12 [Concomitant]
     Indication: ROUTINE HEALTH MAINTENANCE
     Dosage: 2500 MG
     Route: 048
  7. MEDICATION NOT FURTHER SPECIFIED [Concomitant]
     Indication: GASTROOESOPHAGEAL REFLUX DISEASE
     Route: 048

REACTIONS (5)
  - OEDEMA PERIPHERAL [None]
  - DYSPNOEA [None]
  - TREMOR [None]
  - AMNESIA [None]
  - POLLAKIURIA [None]
